FAERS Safety Report 25791087 (Version 1)
Quarter: 2025Q3

REPORT INFORMATION
  Report Type: Spontaneous
  Country: US (occurrence: US)
  Receive Date: 20250911
  Receipt Date: 20250911
  Transmission Date: 20251020
  Serious: Yes (Hospitalization, Other)
  Sender: TEVA
  Company Number: US-TEVA-VS-3369025

PATIENT
  Age: 14 Year
  Sex: Male

DRUGS (10)
  1. QUETIAPINE [Suspect]
     Active Substance: QUETIAPINE
     Indication: Suicide attempt
     Route: 065
  2. SENNA LEAF [Suspect]
     Active Substance: SENNA LEAF
     Indication: Prophylaxis
     Route: 065
  3. CLOZAPINE [Suspect]
     Active Substance: CLOZAPINE
     Indication: Bipolar disorder
     Route: 065
  4. CLOZAPINE [Suspect]
     Active Substance: CLOZAPINE
     Indication: Bipolar disorder
     Route: 065
  5. DOCUSATE [Suspect]
     Active Substance: DOCUSATE
     Indication: Prophylaxis
     Route: 065
  6. CHLORPROMAZINE [Suspect]
     Active Substance: CHLORPROMAZINE
     Indication: Bipolar disorder
     Route: 065
  7. DEXMEDETOMIDINE [Suspect]
     Active Substance: DEXMEDETOMIDINE
     Indication: Bipolar disorder
     Route: 065
  8. OLANZAPINE [Concomitant]
     Active Substance: OLANZAPINE
     Indication: Bipolar disorder
     Route: 065
  9. LITHIUM [Suspect]
     Active Substance: LITHIUM
     Indication: Bipolar disorder
     Route: 065
  10. VALPROIC ACID [Suspect]
     Active Substance: VALPROIC ACID
     Indication: Bipolar disorder
     Route: 065

REACTIONS (6)
  - Intentional overdose [Unknown]
  - Sedation [Unknown]
  - Respiratory failure [Unknown]
  - Aspiration [Unknown]
  - Drug ineffective [Unknown]
  - Drooling [Unknown]
